FAERS Safety Report 16097810 (Version 5)
Quarter: 2019Q3

REPORT INFORMATION
  Report Type: Report from Study
  Country: US (occurrence: US)
  Receive Date: 20190320
  Receipt Date: 20190826
  Transmission Date: 20191004
  Serious: Yes (Hospitalization)
  Sender: FDA-Public Use
  Company Number: US-B.I. PHARMACEUTICALS,INC./RIDGEFIELD-2018-BI-025301

PATIENT
  Age: 60 Year
  Sex: Female

DRUGS (1)
  1. OFEV [Suspect]
     Active Substance: NINTEDANIB
     Indication: IDIOPATHIC PULMONARY FIBROSIS
     Route: 048
     Dates: start: 20180423

REACTIONS (27)
  - Diarrhoea [Not Recovered/Not Resolved]
  - Fatigue [Unknown]
  - Cough [Unknown]
  - Muscle spasms [Unknown]
  - Contusion [Unknown]
  - Epistaxis [Unknown]
  - White blood cell count increased [Unknown]
  - Haematochezia [Unknown]
  - Gastroenteritis viral [Unknown]
  - Diarrhoea [Unknown]
  - Dehydration [Unknown]
  - Chest pain [Unknown]
  - Sepsis [Recovered/Resolved]
  - Alopecia [Unknown]
  - Productive cough [Not Recovered/Not Resolved]
  - Pneumonia [Unknown]
  - Nasopharyngitis [Unknown]
  - Haemorrhoids [Unknown]
  - Retching [Unknown]
  - Night sweats [Unknown]
  - Feeling cold [Unknown]
  - Chest discomfort [Unknown]
  - Malaise [Unknown]
  - Rectal haemorrhage [Recovered/Resolved]
  - Urinary tract infection [Recovered/Resolved]
  - Dyspnoea [Not Recovered/Not Resolved]
  - Polyp [Unknown]

NARRATIVE: CASE EVENT DATE: 201902
